FAERS Safety Report 5728149-1 (Version None)
Quarter: 2008Q2

REPORT INFORMATION
  Report Type: 
  Country: None (occurrence: None)
  Receive Date: 20080505
  Receipt Date: 20080425
  Transmission Date: 20081010
  Serious: Yes (Other)
  Sender: FDA-Public Use
  Company Number: GB-ABBOTT-08P-167-0449349-00

PATIENT
  Sex: Female

DRUGS (5)
  1. HUMIRA [Suspect]
     Indication: RHEUMATOID ARTHRITIS
     Route: 058
     Dates: start: 20080201
  2. CARBAMAZEPINE [Concomitant]
     Indication: EPILEPSY
  3. METHOTREXATE [Concomitant]
     Indication: RHEUMATOID ARTHRITIS
  4. OXYRODONE [Concomitant]
     Indication: RHEUMATOID ARTHRITIS
  5. OXYRODONE [Concomitant]
     Indication: PAIN

REACTIONS (6)
  - APPETITE DISORDER [None]
  - DECREASED APPETITE [None]
  - EATING DISORDER [None]
  - NAUSEA [None]
  - SYNCOPE [None]
  - WEIGHT DECREASED [None]
